FAERS Safety Report 9182269 (Version 1)
Quarter: 2013Q1

REPORT INFORMATION
  Report Type: Spontaneous
  Country: US (occurrence: None)
  Receive Date: 20130321
  Receipt Date: 20130321
  Transmission Date: 20140127
  Serious: No
  Sender: FDA-Public Use
  Company Number: None

PATIENT
  Sex: Female
  Weight: 79.38 kg

DRUGS (2)
  1. PRAVASTATIN [Suspect]
     Indication: HYPERTENSION
     Dosage: 40 1X1 ORAL
     Route: 048
     Dates: start: 20121212
  2. DIOVAN HCT [Suspect]
     Dosage: 320/12.5  1X1 ORAL
     Route: 048
     Dates: start: 20121212

REACTIONS (8)
  - Pain in extremity [None]
  - Movement disorder [None]
  - Neck pain [None]
  - Pain [None]
  - Arthritis [None]
  - Muscle disorder [None]
  - Back disorder [None]
  - Bone disorder [None]
